FAERS Safety Report 6953094-3 (Version None)
Quarter: 2010Q3

REPORT INFORMATION
  Report Type: 
  Country: None (occurrence: None)
  Receive Date: 20100829
  Receipt Date: 20100524
  Transmission Date: 20110219
  Serious: No
  Sender: FDA-Public Use
  Company Number: US-ABBOTT-10P-163-0647919-00

PATIENT
  Sex: Female
  Weight: 64.468 kg

DRUGS (4)
  1. NIASPAN [Suspect]
     Indication: BLOOD CHOLESTEROL INCREASED
     Dates: start: 20100301, end: 20100501
  2. NIASPAN [Suspect]
     Dates: start: 20100501
  3. ALLEGRA D 24 HOUR [Concomitant]
     Indication: HYPERSENSITIVITY
  4. ALLEGRA [Concomitant]
     Indication: HYPERSENSITIVITY

REACTIONS (7)
  - ABDOMINAL DISCOMFORT [None]
  - BLOOD CHOLESTEROL ABNORMAL [None]
  - DIARRHOEA [None]
  - FLUSHING [None]
  - HEADACHE [None]
  - SOMNOLENCE [None]
  - STRESS [None]
